FAERS Safety Report 8541942-5 (Version None)
Quarter: 2012Q3

REPORT INFORMATION
  Report Type: 
  Country: None (occurrence: None)
  Receive Date: 20120726
  Receipt Date: 20120719
  Transmission Date: 20120928
  Serious: No
  Sender: FDA-Public Use
  Company Number: US-B.I. PHARMACEUTICALS,INC./RIDGEFIELD-2012-BP-16150BP

PATIENT
  Sex: Female
  Weight: 89 kg

DRUGS (11)
  1. ABILIFY [Concomitant]
     Indication: DEPRESSION
     Dates: start: 20110101
  2. FLORINEF [Concomitant]
     Indication: HYPONATRAEMIA
     Dates: start: 20090101
  3. SPIRIVA [Suspect]
     Indication: CHRONIC OBSTRUCTIVE PULMONARY DISEASE
     Route: 055
     Dates: start: 20100101
  4. SPIRIVA [Suspect]
     Route: 048
     Dates: start: 20120719, end: 20120719
  5. KLONOPIN [Concomitant]
     Indication: DEPRESSION
     Dates: start: 20090101
  6. ADVAIR DISKUS 100/50 [Concomitant]
     Indication: CHRONIC OBSTRUCTIVE PULMONARY DISEASE
     Dates: start: 20100101
  7. FLEXERIL [Concomitant]
     Indication: ARTHRITIS
     Dates: start: 20090101
  8. FLORINEF [Concomitant]
     Indication: SYNCOPE
  9. CYMBALTA [Concomitant]
     Indication: DEPRESSION
  10. TRAZODONE HYDROCHLORIDE [Concomitant]
     Indication: INSOMNIA
     Dates: start: 20090101
  11. VICODIN [Concomitant]
     Indication: ARTHRITIS
     Dates: start: 20090101

REACTIONS (1)
  - INCORRECT ROUTE OF DRUG ADMINISTRATION [None]
